FAERS Safety Report 17914246 (Version 2)
Quarter: 2020Q3

REPORT INFORMATION
  Report Type: Spontaneous
  Country: US (occurrence: US)
  Receive Date: 20200618
  Receipt Date: 20200901
  Transmission Date: 20201103
  Serious: Yes (Hospitalization, Other)
  Sender: FDA-Public Use
  Company Number: US-NAPPMUNDI-USA-2020-0154604

PATIENT
  Sex: Male

DRUGS (5)
  1. OXYCONTIN [Suspect]
     Active Substance: OXYCODONE HYDROCHLORIDE
     Indication: PAIN
     Dosage: 7 X 30 MG TABLETS, DAILY
     Route: 048
     Dates: start: 2001
  2. OXYCODONE HYDROCHLORIDE (SIMILAR TO NDA 22?272) [Suspect]
     Active Substance: OXYCODONE HYDROCHLORIDE
     Indication: INJURY
     Dosage: UNK
     Route: 048
  3. OXYCONTIN [Suspect]
     Active Substance: OXYCODONE HYDROCHLORIDE
     Indication: INJURY
  4. OXYCODONE HCL CR TABLETS (SIMILAR TO NDA 22?272) [Suspect]
     Active Substance: OXYCODONE HYDROCHLORIDE
     Indication: PAIN
     Dosage: 40 MG, BID
     Route: 048
     Dates: end: 201908
  5. ACTIQ [Suspect]
     Active Substance: FENTANYL CITRATE
     Indication: PAIN
     Dosage: UNK
     Route: 048
     Dates: start: 20010207, end: 2010

REACTIONS (14)
  - Multi-organ disorder [Recovered/Resolved]
  - Tooth loss [Recovered/Resolved]
  - Drug clearance increased [Unknown]
  - Hospitalisation [Recovered/Resolved]
  - Gallbladder disorder [Recovered/Resolved]
  - Overdose [Recovered/Resolved]
  - Cholecystectomy [Recovered/Resolved]
  - Biliary catheter insertion [Recovered/Resolved]
  - Surgery [Recovered/Resolved]
  - Bone loss [Recovered/Resolved]
  - Liver injury [Recovered/Resolved]
  - Gallbladder injury [Recovered/Resolved]
  - Hepatic failure [Recovered/Resolved]
  - Depression [Unknown]

NARRATIVE: CASE EVENT DATE: 2001
